FAERS Safety Report 16558758 (Version 1)
Quarter: 2019Q3

REPORT INFORMATION
  Report Type: Spontaneous
  Country: GB (occurrence: GB)
  Receive Date: 20190711
  Receipt Date: 20190711
  Transmission Date: 20191004
  Serious: Yes (Death, Life-Threatening, Disabling, Other)
  Sender: FDA-Public Use
  Company Number: GB-BAXTER-2019BAX013189

PATIENT
  Sex: Female

DRUGS (1)
  1. BUPIVACAINE-CLARIS 5MG/ML SOLUTION FOR INJECTION [Suspect]
     Active Substance: BUPIVACAINE HYDROCHLORIDE
     Indication: SPINAL ANAESTHESIA
     Route: 008

REACTIONS (8)
  - Dyspnoea [Unknown]
  - Local anaesthetic systemic toxicity [Fatal]
  - Lethargy [Unknown]
  - Abdominal pain upper [Unknown]
  - Condition aggravated [Not Recovered/Not Resolved]
  - Euphoric mood [Unknown]
  - Accidental overdose [Unknown]
  - Rectal cancer [Unknown]

NARRATIVE: CASE EVENT DATE: 20130509
